FAERS Safety Report 17770884 (Version 1)
Quarter: 2020Q2

REPORT INFORMATION
  Report Type: Spontaneous
  Country: US (occurrence: US)
  Receive Date: 20200512
  Receipt Date: 20200512
  Transmission Date: 20200714
  Serious: Yes (Other)
  Sender: FDA-Public Use
  Company Number: US-PFIZER INC-2020187490

PATIENT
  Age: 64 Year
  Sex: Female
  Weight: 49.44 kg

DRUGS (2)
  1. LEVOTHYROXINE SODIUM. [Suspect]
     Active Substance: LEVOTHYROXINE SODIUM
     Indication: HYPOTHYROIDISM
     Dosage: 75 UG, 1X/DAY (75MCG ONCE A DAY)
     Dates: start: 202001
  2. CYTOMEL [Suspect]
     Active Substance: LIOTHYRONINE SODIUM
     Indication: HYPOTHYROIDISM
     Dosage: 17.5 UG, 1X/DAY (17.5MCG ONCE A DAY)
     Dates: start: 202001

REACTIONS (3)
  - Drug intolerance [Unknown]
  - Coeliac disease [Unknown]
  - Disease recurrence [Unknown]
